FAERS Safety Report 8666404 (Version 3)
Quarter: 2012Q4

REPORT INFORMATION
  Report Type: 
  Country: JP (occurrence: JP)
  Receive Date: 20120716
  Receipt Date: 20120913
  Transmission Date: 20130627
  Serious: Yes (Death, Hospitalization, Disabling, Other)
  Sender: FDA-Public Use
  Company Number: JP-ACTELION-A-CH2012-68302

PATIENT
  Age: 13 Year
  Sex: Male
  Weight: 38 kg

DRUGS (13)
  1. TRACLEER [Suspect]
     Indication: PULMONARY ARTERIAL HYPERTENSION
     Dosage: 31.25 mg, bid
     Route: 048
     Dates: start: 20090513, end: 20110602
  2. TRACLEER [Suspect]
     Dosage: 15.63 mg, bid
     Route: 048
     Dates: start: 20090415, end: 20090512
  3. AMIODARONE HYDROCHLORIDE [Suspect]
     Dosage: 100 mg, bid
     Route: 048
     Dates: start: 20100121, end: 20100202
  4. AMIODARONE HYDROCHLORIDE [Suspect]
     Dosage: 50 mg, bid
     Route: 048
     Dates: start: 20100203, end: 20100205
  5. AMIODARONE HYDROCHLORIDE [Suspect]
     Dosage: 100 mg, bid
     Route: 048
     Dates: start: 20110112
  6. BERAPROST SODIUM [Concomitant]
  7. SILDENAFIL CITRATE [Concomitant]
  8. FUROSEMIDE [Concomitant]
  9. SPIRONOLACTONE [Concomitant]
  10. URSODEOXYCHOLIC ACID [Concomitant]
  11. GLYCYRRHIZIC ACID, AMMONIUM SALT [Concomitant]
  12. GLYCINE [Concomitant]
  13. METHIONINUM [Concomitant]

REACTIONS (16)
  - Septic shock [Fatal]
  - Epstein-Barr virus infection [Fatal]
  - Stem cell transplant [Unknown]
  - Hepatic function abnormal [Unknown]
  - Concomitant disease progression [Unknown]
  - Supraventricular tachycardia [Not Recovered/Not Resolved]
  - Thrombocytopenic purpura [Recovered/Resolved]
  - Right ventricular failure [Recovering/Resolving]
  - Coronary artery aneurysm [Not Recovered/Not Resolved]
  - Dermatitis allergic [Recovering/Resolving]
  - Abdominal pain [Unknown]
  - Aspartate aminotransferase increased [Unknown]
  - Alanine aminotransferase increased [Unknown]
  - Epstein-Barr virus test positive [Fatal]
  - Extrasystoles [Not Recovered/Not Resolved]
  - Pharyngitis [Recovered/Resolved]
